FAERS Safety Report 22155621 (Version 28)
Quarter: 2024Q4

REPORT INFORMATION
  Report Type: Spontaneous
  Country: US (occurrence: US)
  Receive Date: 20230330
  Receipt Date: 20241016
  Transmission Date: 20250114
  Serious: Yes (Death, Life-Threatening, Hospitalization, Other)
  Sender: RANBAXY
  Company Number: US-SUN PHARMACEUTICAL INDUSTRIES LTD-2023R1-380493

PATIENT
  Age: 58 Year
  Sex: Female
  Weight: 73.923 kg

DRUGS (32)
  1. EPOPROSTENOL [Suspect]
     Active Substance: EPOPROSTENOL
     Indication: Pulmonary arterial hypertension
     Dosage: 30.26 NG/KG/MIN
     Route: 042
     Dates: start: 20221229
  2. EPOPROSTENOL [Suspect]
     Active Substance: EPOPROSTENOL
     Dosage: 31.35 NG/KG/MIN
     Route: 042
     Dates: start: 20221229
  3. EPOPROSTENOL [Suspect]
     Active Substance: EPOPROSTENOL
     Dosage: 33 NG/KG/MIN
     Route: 042
     Dates: start: 20221229
  4. EPOPROSTENOL [Suspect]
     Active Substance: EPOPROSTENOL
     Dosage: UNK (35 NG/KG/MIN)
     Route: 042
     Dates: start: 20221229
  5. EPOPROSTENOL [Suspect]
     Active Substance: EPOPROSTENOL
     Dosage: 36NG/KG/MIN
     Route: 042
     Dates: start: 20221229
  6. EPOPROSTENOL [Suspect]
     Active Substance: EPOPROSTENOL
     Dosage: 36NG/KG/MIN
     Route: 042
     Dates: start: 20221229
  7. EPOPROSTENOL [Suspect]
     Active Substance: EPOPROSTENOL
     Dosage: 39 NG/KG/MIN
     Route: 042
     Dates: start: 20221229
  8. EPOPROSTENOL [Suspect]
     Active Substance: EPOPROSTENOL
     Dosage: 45.2 NG/KG/MIN
     Route: 042
     Dates: start: 20221229
  9. EPOPROSTENOL [Suspect]
     Active Substance: EPOPROSTENOL
     Dosage: 52.4 NG/KG/MIN
     Route: 042
     Dates: start: 20221229
  10. EPOPROSTENOL [Suspect]
     Active Substance: EPOPROSTENOL
     Dosage: 53.4 NG/KG/MIN
     Route: 042
     Dates: start: 20221229
  11. EPOPROSTENOL [Suspect]
     Active Substance: EPOPROSTENOL
     Dosage: 53.4 NG/KG/MIN
     Route: 042
     Dates: start: 20221229
  12. EPOPROSTENOL [Suspect]
     Active Substance: EPOPROSTENOL
     Dosage: 53.4 NG/KG/MIN
     Route: 042
     Dates: start: 20221229
  13. EPOPROSTENOL [Suspect]
     Active Substance: EPOPROSTENOL
     Dosage: 51.4 NG/KG/MIN CONTINUOUS
     Route: 042
     Dates: start: 20221229
  14. EPOPROSTENOL [Suspect]
     Active Substance: EPOPROSTENOL
     Dosage: 51.4 NG/KG/MIN CONTINUOUS
     Route: 042
     Dates: start: 20221229
  15. EPOPROSTENOL [Suspect]
     Active Substance: EPOPROSTENOL
     Dosage: 65.4 NG/KG/MIN
     Route: 042
     Dates: start: 20221229
  16. EPOPROSTENOL [Suspect]
     Active Substance: EPOPROSTENOL
     Dosage: UNK (62 NG/KG/MIN)
     Route: 042
     Dates: start: 20221229
  17. EPOPROSTENOL [Suspect]
     Active Substance: EPOPROSTENOL
     Dosage: (62 NG/KG/MIN), CONTINUOUS
     Route: 042
  18. FUROSEMIDE [Suspect]
     Active Substance: FUROSEMIDE
     Indication: Erythema
     Route: 065
  19. ACETAMINOPHEN\CODEINE PHOSPHATE [Concomitant]
     Active Substance: ACETAMINOPHEN\CODEINE PHOSPHATE
     Indication: Product used for unknown indication
     Dosage: UNK
     Route: 065
  20. ADEMPAS [Concomitant]
     Active Substance: RIOCIGUAT
     Indication: Product used for unknown indication
     Dosage: UNK
     Route: 065
  21. BENADRYL [Concomitant]
     Active Substance: DIPHENHYDRAMINE HYDROCHLORIDE
     Indication: Product used for unknown indication
     Dosage: UNK
     Route: 065
  22. CODEINE SULFATE [Concomitant]
     Active Substance: CODEINE SULFATE
     Indication: Product used for unknown indication
     Dosage: UNK
     Route: 065
  23. DIPHENHYDRAMINE HYDROCHLORIDE [Concomitant]
     Active Substance: DIPHENHYDRAMINE HYDROCHLORIDE
     Indication: Product used for unknown indication
     Dosage: UNK
     Route: 065
  24. ELIQUIS [Concomitant]
     Active Substance: APIXABAN
     Indication: Product used for unknown indication
     Dosage: UNK
     Route: 065
  25. METHIMAZOLE [Concomitant]
     Active Substance: METHIMAZOLE
     Indication: Product used for unknown indication
     Dosage: UNK
     Route: 065
  26. ONDANSETRON HYDROCHLORIDE [Concomitant]
     Active Substance: ONDANSETRON HYDROCHLORIDE
     Indication: Product used for unknown indication
     Dosage: UNK
     Route: 065
  27. OXYGEN [Concomitant]
     Active Substance: OXYGEN
     Indication: Product used for unknown indication
     Dosage: UNK
     Route: 065
  28. SODIUM CHLORIDE [Concomitant]
     Active Substance: SODIUM CHLORIDE
     Indication: Product used for unknown indication
     Dosage: UNK
     Route: 065
  29. SPIRONOLACTONE [Concomitant]
     Active Substance: SPIRONOLACTONE
     Indication: Product used for unknown indication
     Dosage: UNK
     Route: 065
  30. VELETRI [Concomitant]
     Active Substance: EPOPROSTENOL
     Indication: Product used for unknown indication
     Dosage: UNK
     Route: 065
  31. XARELTO [Concomitant]
     Active Substance: RIVAROXABAN
     Indication: Product used for unknown indication
     Dosage: UNK
     Route: 065
  32. LIDOCAINE [Concomitant]
     Active Substance: LIDOCAINE
     Indication: Product used for unknown indication
     Dosage: UNK
     Route: 065

REACTIONS (28)
  - Feeling abnormal [Unknown]
  - Complication associated with device [Unknown]
  - Rheumatoid arthritis [Unknown]
  - Ulcer haemorrhage [Unknown]
  - Gastric ulcer [Unknown]
  - Cough [Unknown]
  - Diarrhoea [Unknown]
  - Fatigue [Unknown]
  - Hypersensitivity [Unknown]
  - Intentional product use issue [Unknown]
  - Malaise [Unknown]
  - Nausea [Unknown]
  - Vomiting [Unknown]
  - Application site pruritus [Unknown]
  - Adverse reaction [Unknown]
  - Skin irritation [Unknown]
  - Upper-airway cough syndrome [Unknown]
  - Seasonal allergy [Unknown]
  - Pruritus [Unknown]
  - Malaise [Unknown]
  - Feeling abnormal [Unknown]
  - Injection site erythema [Unknown]
  - Rash [Unknown]
  - Erythema [Unknown]
  - Weight decreased [Unknown]
  - Malaise [Unknown]
  - Dizziness [Unknown]
  - Death [Fatal]

NARRATIVE: CASE EVENT DATE: 20230412
